FAERS Safety Report 9335212 (Version 3)
Quarter: 2013Q3

REPORT INFORMATION
  Report Type: Spontaneous
  Country: BE (occurrence: BE)
  Receive Date: 20130606
  Receipt Date: 20130712
  Transmission Date: 20140515
  Serious: Yes (Hospitalization)
  Sender: FDA-Public Use
  Company Number: BE-GLAXOSMITHKLINE-B0897377A

PATIENT
  Age: 19 Year
  Sex: Female
  Weight: 70 kg

DRUGS (8)
  1. SERETIDE [Suspect]
     Indication: ASTHMA
     Dosage: 1PUFF TWICE PER DAY
     Route: 055
     Dates: start: 20120615, end: 20121207
  2. NORVIR [Suspect]
     Indication: HIV INFECTION
     Dosage: 100MG PER DAY
     Route: 048
     Dates: start: 20120115
  3. PREZISTA [Concomitant]
     Indication: HIV INFECTION
     Dosage: 800MG PER DAY
     Route: 048
     Dates: start: 20120115
  4. KIVEXA [Concomitant]
     Indication: HIV INFECTION
     Dosage: 1TAB PER DAY
     Route: 065
     Dates: start: 20120115
  5. PANTOPRAZOLE [Concomitant]
     Dosage: 80MG PER DAY
     Route: 048
  6. TETRAZEPAM [Concomitant]
     Indication: BACK PAIN
     Dosage: 50U TWICE PER DAY
     Route: 048
  7. CETIRIZINE [Concomitant]
     Dosage: 10MG PER DAY
     Route: 065
  8. EUSAPRIM FORTE [Concomitant]
     Indication: HIV INFECTION
     Dosage: 800MG PER DAY
     Route: 048
     Dates: start: 20120115

REACTIONS (15)
  - Cushing^s syndrome [Recovered/Resolved]
  - Adrenal insufficiency [Recovered/Resolved]
  - Blood cortisol abnormal [Unknown]
  - Cushingoid [Unknown]
  - Central obesity [Unknown]
  - Drug interaction [Unknown]
  - Local swelling [Unknown]
  - Abdominal distension [Unknown]
  - Fatigue [Unknown]
  - Arthralgia [Unknown]
  - Dyspnoea exertional [Unknown]
  - Weight increased [Recovering/Resolving]
  - Visual impairment [Unknown]
  - Swelling face [Unknown]
  - Lymphopenia [Unknown]
